FAERS Safety Report 4798197-7 (Version None)
Quarter: 2005Q4

REPORT INFORMATION
  Report Type: 
  Country: None (occurrence: None)
  Receive Date: 20051014
  Receipt Date: 20051004
  Transmission Date: 20060501
  Serious: Yes (Hospitalization)
  Sender: FDA-Public Use
  Company Number: 2005UW14888

PATIENT
  Age: 77 Year
  Sex: Female
  Weight: 65.8 kg

DRUGS (2)
  1. CRESTOR [Suspect]
     Indication: BLOOD CHOLESTEROL INCREASED
     Route: 048
  2. LIPITOR [Suspect]
     Indication: BLOOD CHOLESTEROL INCREASED

REACTIONS (8)
  - BLISTER [None]
  - DRUG TOXICITY [None]
  - FALL [None]
  - FRACTURE [None]
  - OEDEMA PERIPHERAL [None]
  - RASH [None]
  - URINARY TRACT INFECTION [None]
  - URTICARIA GENERALISED [None]
